FAERS Safety Report 8161109-2 (Version None)
Quarter: 2012Q1

REPORT INFORMATION
  Report Type: 
  Country: None (occurrence: None)
  Receive Date: 20120224
  Receipt Date: 20120221
  Transmission Date: 20120608
  Serious: No
  Sender: FDA-Public Use
  Company Number: US-PFIZER INC-2012018393

PATIENT
  Sex: Female
  Weight: 68.027 kg

DRUGS (6)
  1. CHANTIX [Suspect]
     Dosage: 0.5 MG, 2X/DAY
     Dates: start: 20120101
  2. CHANTIX [Suspect]
     Indication: SMOKING CESSATION THERAPY
     Dosage: 0.5 MG, DAILY
     Dates: start: 20120120, end: 20120101
  3. HYDROCHLOROTHIAZIDE [Concomitant]
     Indication: HYPERTENSION
     Dosage: 25 MG, DAILY
  4. NIFEDIPINE [Concomitant]
     Indication: ANGINA PECTORIS
     Dosage: 60 MG, 2X/DAY
  5. METOPROLOL [Concomitant]
     Indication: HYPERTENSION
     Dosage: 50 MG, DAILY
  6. FLUTICASONE [Concomitant]
     Indication: ALLERGIC SINUSITIS
     Dosage: 50 MG, 2X/DAY
     Route: 045

REACTIONS (2)
  - NAUSEA [None]
  - ALLERGIC SINUSITIS [None]
